FAERS Safety Report 14145991 (Version 2)
Quarter: 2018Q2

REPORT INFORMATION
  Report Type: Spontaneous
  Country: FR (occurrence: FR)
  Receive Date: 20171031
  Receipt Date: 20180419
  Transmission Date: 20180711
  Serious: Yes (Other)
  Sender: FDA-Public Use
  Company Number: FR-MERCK KGAA-2032864

PATIENT
  Age: 41 Year
  Sex: Male

DRUGS (1)
  1. NOVOTHYROX [Suspect]
     Active Substance: LEVOTHYROXINE SODIUM
     Indication: AUTOIMMUNE THYROIDITIS
     Route: 048

REACTIONS (20)
  - Malaise [Not Recovered/Not Resolved]
  - Nausea [Not Recovered/Not Resolved]
  - Depression [None]
  - Diarrhoea [None]
  - Decreased appetite [None]
  - Inner ear inflammation [None]
  - Anxiety [None]
  - Loss of personal independence in daily activities [None]
  - Tri-iodothyronine decreased [None]
  - Blood thyroid stimulating hormone [Not Recovered/Not Resolved]
  - Dizziness [Not Recovered/Not Resolved]
  - Tinnitus [None]
  - Impaired driving ability [None]
  - Fatigue [Not Recovered/Not Resolved]
  - Family stress [None]
  - Vomiting [None]
  - Hypokinesia [None]
  - Misophonia [None]
  - Arthralgia [Not Recovered/Not Resolved]
  - Irritability [None]

NARRATIVE: CASE EVENT DATE: 20170605
